FAERS Safety Report 7156525-1 (Version None)
Quarter: 2010Q4

REPORT INFORMATION
  Report Type: 
  Country: None (occurrence: None)
  Receive Date: 20101116
  Receipt Date: 20101103
  Transmission Date: 20110411
  Serious: Yes (Other)
  Sender: FDA-Public Use
  Company Number: 2010026807

PATIENT
  Sex: Female

DRUGS (1)
  1. PRIVIGEN [Suspect]
     Dosage: 10 G INTRAVENOUS (NOT OTHERWISE SPECIFIED)
     Route: 042
     Dates: start: 20101030, end: 20101030

REACTIONS (6)
  - BLOOD PRESSURE FLUCTUATION [None]
  - FATIGUE [None]
  - HEPATITIS C ANTIBODY POSITIVE [None]
  - LIVER FUNCTION TEST ABNORMAL [None]
  - PERIPHERAL CIRCULATORY FAILURE [None]
  - TRANSMISSION OF AN INFECTIOUS AGENT VIA A MEDICINAL PRODUCT [None]
